FAERS Safety Report 8836892 (Version 1)
Quarter: 2012Q4

REPORT INFORMATION
  Report Type: 
  Country: US (occurrence: US)
  Receive Date: 20121012
  Receipt Date: 20121012
  Transmission Date: 20130627
  Serious: Yes (Death, Other)
  Sender: FDA-Public Use
  Company Number: US-PFIZER INC-2012251434

PATIENT
  Age: 29 Year
  Sex: Male
  Weight: 77.1 kg

DRUGS (2)
  1. EFFEXOR XR [Suspect]
     Indication: DEPRESSION
     Dosage: 150 mg, UNK
     Route: 048
  2. EFFEXOR XR [Suspect]
     Indication: PERSONALITY DISORDER

REACTIONS (2)
  - Off label use [Fatal]
  - Completed suicide [Fatal]
